FAERS Safety Report 5485485-4 (Version None)
Quarter: 2007Q4

REPORT INFORMATION
  Report Type: 
  Country: None (occurrence: None)
  Receive Date: 20071010
  Receipt Date: 20071010
  Transmission Date: 20080405
  Serious: Yes (Life-Threatening, Hospitalization)
  Sender: FDA-Public Use
  Company Number: None

PATIENT
  Age: 46 Year
  Sex: Female

DRUGS (2)
  1. DONNATAL [Suspect]
     Indication: DYSPEPSIA
     Dosage: ONCE PO
     Route: 048
     Dates: start: 20070803, end: 20070803
  2. MORPHINE [Suspect]
     Indication: ABDOMINAL PAIN
     Dosage: 4MG IV PO
     Route: 048
     Dates: start: 20070803, end: 20070803

REACTIONS (6)
  - ANAPHYLACTIC REACTION [None]
  - HYPOTENSION [None]
  - LARYNGEAL OEDEMA [None]
  - RESPIRATORY FAILURE [None]
  - STRIDOR [None]
  - TACHYCARDIA [None]
